FAERS Safety Report 14234871 (Version 2)
Quarter: 2017Q4

REPORT INFORMATION
  Report Type: Spontaneous
  Country: CA (occurrence: CA)
  Receive Date: 20171129
  Receipt Date: 20171207
  Transmission Date: 20180321
  Serious: Yes (Other)
  Sender: FDA-Public Use
  Company Number: CA-SAOL THERAPEUTICS-2017SAO03384

PATIENT

DRUGS (2)
  1. BACLOFEN. [Suspect]
     Active Substance: BACLOFEN
     Dosage: 235.1 ?G, \DAY
     Route: 037
     Dates: start: 20171027
  2. BACLOFEN. [Suspect]
     Active Substance: BACLOFEN
     Dosage: 300.5 ?G, \DAY
     Route: 037
     Dates: end: 20171027

REACTIONS (3)
  - Road traffic accident [Unknown]
  - Therapeutic response decreased [Unknown]
  - Device dislocation [Unknown]

NARRATIVE: CASE EVENT DATE: 2016
